FAERS Safety Report 18578660 (Version 1)
Quarter: 2020Q4

REPORT INFORMATION
  Report Type: Other
  Country: DE (occurrence: DE)
  Receive Date: 20201204
  Receipt Date: 20201204
  Transmission Date: 20210114
  Serious: Yes (Other)
  Sender: FDA-Public Use
  Company Number: DE-MACLEODS PHARMACEUTICALS US LTD-MAC2020029298

PATIENT

DRUGS (1)
  1. LEVOFLOXACIN. [Suspect]
     Active Substance: LEVOFLOXACIN
     Indication: URETHRITIS
     Dosage: UNK
     Route: 065

REACTIONS (2)
  - Muscle discomfort [Not Recovered/Not Resolved]
  - Renal impairment [Recovered/Resolved]
